FAERS Safety Report 9723033 (Version 1)
Quarter: 2013Q4

REPORT INFORMATION
  Report Type: Spontaneous
  Country: US (occurrence: US)
  Receive Date: 20131202
  Receipt Date: 20131202
  Transmission Date: 20140711
  Serious: Yes (Other)
  Sender: FDA-Public Use
  Company Number: US-009507513-1311USA011711

PATIENT
  Age: 62 Year
  Sex: Female

DRUGS (1)
  1. SYLATRON [Suspect]
     Indication: MALIGNANT MELANOMA
     Dosage: UNKNOWN

REACTIONS (1)
  - Transient ischaemic attack [Unknown]
